FAERS Safety Report 16363273 (Version 1)
Quarter: 2019Q2

REPORT INFORMATION
  Report Type: Spontaneous
  Country: JP (occurrence: JP)
  Receive Date: 20190528
  Receipt Date: 20190528
  Transmission Date: 20190711
  Serious: Yes (Death, Other)
  Sender: FDA-Public Use
  Company Number: JP-PFIZER INC-2019215227

PATIENT
  Age: 69 Year
  Sex: Female
  Weight: 59.2 kg

DRUGS (3)
  1. METHOTREXATE SODIUM. [Suspect]
     Active Substance: METHOTREXATE SODIUM
     Indication: RHEUMATOID ARTHRITIS
  2. THYRADIN-S [Suspect]
     Active Substance: LEVOTHYROXINE
     Dosage: 50 UG, UNK
  3. TACROLIMUS. [Suspect]
     Active Substance: TACROLIMUS
     Indication: RHEUMATOID ARTHRITIS
     Dosage: 3 MG, UNK

REACTIONS (15)
  - Multiple organ dysfunction syndrome [Fatal]
  - Pneumonia aspiration [Unknown]
  - Malaise [Unknown]
  - Pneumonia bacterial [Unknown]
  - Hyperkalaemia [Unknown]
  - Interstitial lung disease [Unknown]
  - Renal failure [Fatal]
  - Cardiac failure [Fatal]
  - Linear IgA disease [Unknown]
  - Drug intolerance [Unknown]
  - Pneumocystis jirovecii pneumonia [Unknown]
  - Cytomegalovirus infection [Unknown]
  - Fungal infection [Unknown]
  - Respiratory failure [Fatal]
  - Dyspnoea [Unknown]
